FAERS Safety Report 9156086 (Version 2)
Quarter: 2013Q1

REPORT INFORMATION
  Report Type: Spontaneous
  Country: US (occurrence: US)
  Receive Date: 20130311
  Receipt Date: 20130315
  Transmission Date: 20140127
  Serious: No
  Sender: FDA-Public Use
  Company Number: US-009507513-1303USA004920

PATIENT
  Age: 27 None
  Sex: Female
  Weight: 63.49 kg

DRUGS (2)
  1. CLARITIN-D 24 HOUR [Suspect]
     Indication: RESPIRATORY TRACT CONGESTION
     Dosage: 10 MG, ONCE
     Route: 048
     Dates: start: 20130228, end: 20130301
  2. VITAFUSION MULTIVITES [Concomitant]
     Indication: PRODUCT USED FOR UNKNOWN INDICATION
     Dosage: UNK, UNKNOWN

REACTIONS (5)
  - Palpitations [Recovered/Resolved]
  - Agitation [Unknown]
  - Fatigue [Recovered/Resolved]
  - Dry mouth [Recovered/Resolved]
  - Dizziness [Recovered/Resolved]
